FAERS Safety Report 6394319-5 (Version None)
Quarter: 2009Q4

REPORT INFORMATION
  Report Type: 
  Country: None (occurrence: None)
  Receive Date: 20091006
  Receipt Date: 20090930
  Transmission Date: 20100525
  Serious: Yes (Other)
  Sender: FDA-Public Use
  Company Number: ACO_00605_2009

PATIENT
  Age: 65 Year
  Sex: Female

DRUGS (1)
  1. TIZANIDINE HYDROCHLORIDE [Suspect]
     Indication: OSTEOCHONDROSIS
     Dosage: (4 MG ORAL)
     Route: 048
     Dates: start: 20090612, end: 20090613

REACTIONS (2)
  - PHARYNGEAL OEDEMA [None]
  - TONGUE OEDEMA [None]
